FAERS Safety Report 9322058 (Version 1)
Quarter: 2013Q2

REPORT INFORMATION
  Report Type: Spontaneous
  Country: US (occurrence: US)
  Receive Date: 20130531
  Receipt Date: 20130531
  Transmission Date: 20140414
  Serious: Yes (Death)
  Sender: FDA-Public Use
  Company Number: US-BRISTOL-MYERS SQUIBB COMPANY-18931535

PATIENT
  Age: 76 Year
  Sex: Male

DRUGS (18)
  1. ABILIFY [Suspect]
  2. ALLOPURINOL [Concomitant]
  3. FLUDROCORTISONE [Concomitant]
  4. ASPIRINE [Concomitant]
  5. MIDODRINE HCL [Concomitant]
  6. ZEMPLAR [Concomitant]
  7. ALPRAZOLAM [Concomitant]
  8. ATENOLOL [Concomitant]
  9. CYMBALTA [Concomitant]
  10. SIMVASTATIN [Concomitant]
  11. OMEPRAZOLE [Concomitant]
  12. LYRICA [Concomitant]
  13. ROPINIROLE [Concomitant]
  14. GLIPIZIDE [Concomitant]
  15. RAPAFLO [Concomitant]
  16. LORTAB [Concomitant]
     Dosage: 1DF:7.5 UNITS NOS
  17. NITROLINGUAL SPRAY [Concomitant]
  18. RANEXA [Concomitant]

REACTIONS (1)
  - Death [Fatal]
